FAERS Safety Report 8037539-6 (Version None)
Quarter: 2012Q1

REPORT INFORMATION
  Report Type: 
  Country: None (occurrence: None)
  Receive Date: 20120111
  Receipt Date: 20120103
  Transmission Date: 20120608
  Serious: Yes (Hospitalization, Other)
  Sender: FDA-Public Use
  Company Number: US-BAXTER-2011BH038387

PATIENT
  Sex: Female

DRUGS (4)
  1. DIANEAL [Suspect]
     Indication: PERITONEAL DIALYSIS
     Route: 033
     Dates: start: 20110401, end: 20111201
  2. DIANEAL [Suspect]
     Route: 033
     Dates: start: 20110401, end: 20111201
  3. DIANEAL [Suspect]
     Indication: PERITONEAL DIALYSIS
     Route: 033
     Dates: start: 20110401, end: 20111201
  4. DIANEAL [Suspect]
     Route: 033
     Dates: start: 20110401, end: 20111201

REACTIONS (8)
  - PERITONEAL DIALYSIS COMPLICATION [None]
  - CELLULITIS [None]
  - SWELLING [None]
  - INFECTIOUS PERITONITIS [None]
  - BACK PAIN [None]
  - DYSPNOEA [None]
  - MALAISE [None]
  - ABDOMINAL DISTENSION [None]
